FAERS Safety Report 8847471 (Version 7)
Quarter: 2014Q1

REPORT INFORMATION
  Report Type: Spontaneous
  Country: US (occurrence: US)
  Receive Date: 20121018
  Receipt Date: 20140326
  Transmission Date: 20141002
  Serious: Yes (Life-Threatening, Hospitalization, Disabling, Other)
  Sender: FDA-Public Use
  Company Number: US-009507513-1210USA003964

PATIENT
  Sex: Female
  Weight: 65.76 kg

DRUGS (7)
  1. FOSAMAX [Suspect]
     Indication: OSTEOPOROSIS
     Dosage: 10 MG, QD
     Route: 048
  2. FOSAMAX [Suspect]
     Dosage: 70 MG, QW
     Route: 048
     Dates: end: 20070802
  3. CALCIUM (UNSPECIFIED) (+) VITAMIN D (UNSPECIFIED) [Concomitant]
     Dosage: UNK
     Dates: start: 1988
  4. VITAMINS (UNSPECIFIED) [Concomitant]
     Dosage: UNK
     Dates: start: 198809, end: 200801
  5. MEDROL [Concomitant]
     Indication: ASTHMA
     Dosage: 2 MG, UNK
  6. MEDROL [Concomitant]
     Dosage: 4 MG, UNK
  7. CORTICOSTEROIDS (UNSPECIFIED) [Concomitant]
     Indication: ASTHMA

REACTIONS (21)
  - Intramedullary rod insertion [Unknown]
  - Femur fracture [Unknown]
  - Loose tooth [Unknown]
  - Bone loss [Unknown]
  - Wisdom teeth removal [Unknown]
  - Foot fracture [Unknown]
  - Hypercholesterolaemia [Unknown]
  - Rhinorrhoea [Unknown]
  - Chest discomfort [Unknown]
  - Asthma [Unknown]
  - Osteopenia [Unknown]
  - Periodontal disease [Recovering/Resolving]
  - Dental caries [Unknown]
  - Eye contusion [Unknown]
  - Nasal dryness [Unknown]
  - Costochondritis [Unknown]
  - Bronchitis [Unknown]
  - Upper limb fracture [Unknown]
  - Arthralgia [Unknown]
  - Pain in extremity [Unknown]
  - Dyspepsia [Unknown]
